FAERS Safety Report 7773134-1 (Version None)
Quarter: 2011Q3

REPORT INFORMATION
  Report Type: 
  Country: None (occurrence: None)
  Receive Date: 20110922
  Receipt Date: 20100809
  Transmission Date: 20111222
  Serious: No
  Sender: FDA-Public Use
  Company Number: US-ASTRAZENECA-2007UW24319

PATIENT
  Age: 51 Year
  Sex: Female
  Weight: 91.6 kg

DRUGS (12)
  1. DESYREL [Concomitant]
  2. KLONOPIN [Concomitant]
  3. CLONIDINE [Concomitant]
  4. LEXAPRO [Concomitant]
  5. INDAPAMIDE [Concomitant]
  6. GLIPIZIDE [Concomitant]
  7. NORVASC [Concomitant]
  8. SEROQUEL [Suspect]
     Route: 048
     Dates: start: 20040101
  9. ENALAPRIL MALEATE [Concomitant]
  10. LIBRIUM [Concomitant]
  11. CYMBALTA [Concomitant]
  12. SEROQUEL [Suspect]
     Indication: DEPRESSION
     Route: 048
     Dates: start: 20040701, end: 20041101

REACTIONS (3)
  - OBESITY [None]
  - DIABETES MELLITUS [None]
  - DIABETIC COMPLICATION [None]
